FAERS Safety Report 7218681-6 (Version None)
Quarter: 2011Q1

REPORT INFORMATION
  Report Type: 
  Country: None (occurrence: None)
  Receive Date: 20110110
  Receipt Date: 20110105
  Transmission Date: 20110831
  Serious: Yes (Other)
  Sender: FDA-Public Use
  Company Number: US-ABBOTT-11P-163-0695609-00

PATIENT
  Sex: Female
  Weight: 104.42 kg

DRUGS (1)
  1. HUMIRA [Suspect]
     Indication: RHEUMATOID ARTHRITIS
     Dates: start: 20091101

REACTIONS (9)
  - UPPER RESPIRATORY TRACT CONGESTION [None]
  - NECK PAIN [None]
  - DRY SKIN [None]
  - SKIN EXFOLIATION [None]
  - HEADACHE [None]
  - PAIN IN EXTREMITY [None]
  - VISUAL IMPAIRMENT [None]
  - INFECTION [None]
  - EYE IRRITATION [None]
